FAERS Safety Report 13140740 (Version 1)
Quarter: 2017Q1

REPORT INFORMATION
  Report Type: Spontaneous
  Country: JP (occurrence: JP)
  Receive Date: 20170123
  Receipt Date: 20170123
  Transmission Date: 20170428
  Serious: Yes (Other)
  Sender: FDA-Public Use
  Company Number: JP-G+W LABS-GW2017JP000021

PATIENT

DRUGS (1)
  1. METRONIDAZOLE. [Suspect]
     Active Substance: METRONIDAZOLE
     Indication: LUNG ABSCESS
     Dosage: 1.5 G, QD
     Route: 065

REACTIONS (1)
  - Toxic encephalopathy [Recovering/Resolving]
